FAERS Safety Report 5204041-6 (Version None)
Quarter: 2007Q1

REPORT INFORMATION
  Report Type: 
  Country: None (occurrence: None)
  Receive Date: 20070110
  Receipt Date: 20051102
  Transmission Date: 20070707
  Serious: No
  Sender: FDA-Public Use
  Company Number: US-BRISTOL-MYERS SQUIBB COMPANY-13164546

PATIENT
  Age: 13 Year
  Sex: Male

DRUGS (3)
  1. ABILIFY [Suspect]
     Indication: BIPOLAR DISORDER
     Dosage: INITIATED ON 20OCT05 AT 5 MG/D, INCREASED TO 10MG/D ON 27OCT05, REDUCED BACK TO 5MG/D ON 01NOV05
     Route: 048
     Dates: start: 20051020
  2. CONCERTA [Concomitant]
     Dates: start: 20051020
  3. STRATTERA [Concomitant]
     Dates: start: 20051020

REACTIONS (1)
  - OCULOGYRATION [None]
